FAERS Safety Report 15900110 (Version 3)
Quarter: 2019Q1

REPORT INFORMATION
  Report Type: Report from Study
  Country: DE (occurrence: DE)
  Receive Date: 20190201
  Receipt Date: 20190226
  Transmission Date: 20190417
  Serious: Yes (Death, Life-Threatening, Hospitalization, Other)
  Sender: FDA-Public Use
  Company Number: DE-PFIZER INC-2019045322

PATIENT
  Age: 75 Year
  Sex: Male
  Weight: 63.8 kg

DRUGS (13)
  1. CALCIUM FOLINATE [Suspect]
     Active Substance: LEUCOVORIN CALCIUM
     Indication: COLORECTAL CANCER
     Dosage: DOSAGES BETWEEN 470 MG AND 730 MG
     Dates: start: 20130204, end: 20131023
  2. SPIRONOLACTON [Concomitant]
     Active Substance: SPIRONOLACTONE
     Dosage: 100 MG, 1X/DAY
     Dates: start: 20130101
  3. OXALIPLATIN. [Suspect]
     Active Substance: OXALIPLATIN
     Indication: COLORECTAL CANCER
     Dosage: DOSAGES BETWEEN 115 MG AND 155 MG
     Dates: start: 20130204, end: 20130821
  4. BISOPROLOL [Concomitant]
     Active Substance: BISOPROLOL
     Dosage: 2 DF, 1X/DAY
     Dates: start: 20050101
  5. BEVACIZUMAB. [Suspect]
     Active Substance: BEVACIZUMAB
     Indication: COLORECTAL CANCER
     Dosage: 325 MG, UNK
     Route: 042
     Dates: start: 20130218
  6. BEVACIZUMAB. [Suspect]
     Active Substance: BEVACIZUMAB
     Dosage: 325 MG, UNK
     Route: 042
     Dates: end: 20131023
  7. CAPECITABINE. [Suspect]
     Active Substance: CAPECITABINE
     Indication: COLORECTAL CANCER
     Dates: start: 201312, end: 201401
  8. FLUOROURACIL. [Suspect]
     Active Substance: FLUOROURACIL
     Indication: COLORECTAL CANCER
     Dosage: DOSAGES BETWEEN 475 MG AND 725 MG
     Route: 040
     Dates: start: 20130204, end: 20131023
  9. FLUOROURACIL. [Suspect]
     Active Substance: FLUOROURACIL
     Dosage: DOSAGES BETWEEN 2900 MG AND 4350 MG
     Route: 040
     Dates: start: 20130204, end: 20131023
  10. BEVACIZUMAB. [Suspect]
     Active Substance: BEVACIZUMAB
     Dosage: 325 MG, UNK
     Route: 042
     Dates: start: 20130724
  11. PANTOPRAZOLE [Concomitant]
     Active Substance: PANTOPRAZOLE
     Dosage: 40 MG, 1X/DAY
     Dates: start: 20130131
  12. MARCUMAR [Concomitant]
     Active Substance: PHENPROCOUMON
     Dosage: ACCORDING TO PLAN
     Dates: start: 20100101
  13. DENOSUMAB [Concomitant]
     Active Substance: DENOSUMAB
     Dosage: 1 DF, EVERY 4 WEEKS
     Route: 058
     Dates: start: 201406

REACTIONS (11)
  - Palmar-plantar erythrodysaesthesia syndrome [Unknown]
  - Peripheral sensory neuropathy [Unknown]
  - Body temperature increased [Unknown]
  - Diarrhoea [Unknown]
  - Atrial fibrillation [Unknown]
  - Constipation [Unknown]
  - Thrombocytopenia [Unknown]
  - Benign prostatic hyperplasia [Unknown]
  - Jugular vein thrombosis [Recovered/Resolved]
  - Fatigue [Unknown]
  - Neutropenia [Unknown]

NARRATIVE: CASE EVENT DATE: 20130820
